FAERS Safety Report 9847135 (Version 3)
Quarter: 2014Q1

REPORT INFORMATION
  Report Type: Report from Study
  Country: DE (occurrence: DE)
  Receive Date: 20140127
  Receipt Date: 20140219
  Transmission Date: 20141002
  Serious: Yes (Life-Threatening, Hospitalization)
  Sender: FDA-Public Use
  Company Number: DE-ONYX-2013-1750

PATIENT
  Age: 72 Year
  Sex: Male
  Weight: 90 kg

DRUGS (29)
  1. CARFILZOMIB [Suspect]
     Indication: PLASMA CELL MYELOMA
     Route: 042
     Dates: start: 20120206, end: 20120207
  2. CARFILZOMIB [Suspect]
     Route: 042
     Dates: start: 20120213, end: 20120222
  3. CARFILZOMIB [Suspect]
     Route: 042
     Dates: start: 20120305, end: 20120508
  4. CARFILZOMIB [Suspect]
     Route: 042
     Dates: start: 20120529, end: 20130104
  5. CARFILZOMIB [Suspect]
     Route: 042
     Dates: start: 20130114, end: 20130115
  6. CARFILZOMIB [Suspect]
     Route: 042
     Dates: start: 20130212, end: 20130618
  7. LENALIDOMIDE [Suspect]
     Indication: PLASMA CELL MYELOMA
     Route: 048
     Dates: start: 20120206, end: 20120513
  8. LENALIDOMIDE [Suspect]
     Route: 048
     Dates: start: 20120529, end: 20120607
  9. LENALIDOMIDE [Suspect]
     Route: 048
     Dates: start: 20120612, end: 20120705
  10. LENALIDOMIDE [Suspect]
     Route: 048
     Dates: start: 20120723, end: 20120809
  11. LENALIDOMIDE [Suspect]
     Route: 048
     Dates: start: 20120827, end: 20130818
  12. DEXAMETHASONE [Suspect]
     Indication: PLASMA CELL MYELOMA
     Dates: start: 20120206, end: 20120305
  13. DEXAMETHASONE [Suspect]
     Dates: start: 20120319, end: 20120319
  14. DEXAMETHASONE [Suspect]
     Dates: start: 20120402, end: 20120507
  15. DEXAMETHASONE [Suspect]
     Dates: start: 20120521, end: 20130819
  16. ASS [Concomitant]
     Indication: ANTICOAGULANT THERAPY
     Route: 048
     Dates: start: 20120206
  17. ASS [Concomitant]
     Indication: ANTIPLATELET THERAPY
  18. BEZAFIBRAT RETARD [Concomitant]
     Indication: HYPERLIPIDAEMIA
     Route: 048
     Dates: start: 2007
  19. CIPROFLOXACIN [Concomitant]
     Indication: HYPOALBUMINAEMIA
     Route: 048
     Dates: start: 20120329
  20. GLIMEPIRID [Concomitant]
     Indication: TYPE 2 DIABETES MELLITUS
     Route: 048
     Dates: start: 2007
  21. LYRICA [Concomitant]
     Indication: POLYNEUROPATHY
     Route: 048
     Dates: start: 20120305
  22. MAGNESIUM DIASPRORAL [Concomitant]
     Indication: MUSCLE SPASMS
     Route: 048
     Dates: start: 20120325
  23. NEBILET [Concomitant]
     Indication: HYPERTENSION
     Route: 048
     Dates: start: 2007
  24. NEPHROTRANS [Concomitant]
     Indication: RENAL FAILURE
     Route: 048
     Dates: start: 20120306
  25. OMEPRAZOL [Concomitant]
     Indication: PROPHYLAXIS AGAINST GASTROINTESTINAL ULCER
     Route: 048
     Dates: start: 20120430
  26. SIMVASTATIN [Concomitant]
     Indication: HYPERLIPIDAEMIA
     Route: 048
     Dates: start: 2007
  27. UNACID [Concomitant]
     Indication: INFECTION PROPHYLAXIS
     Route: 048
     Dates: start: 20130128
  28. VALTREX [Concomitant]
     Indication: ANTIVIRAL PROPHYLAXIS
     Route: 048
     Dates: start: 20120206
  29. ZOMETA [Concomitant]
     Indication: BONE DISORDER
     Route: 042
     Dates: start: 201010

REACTIONS (2)
  - Pulmonary embolism [Not Recovered/Not Resolved]
  - Pneumonia [Not Recovered/Not Resolved]
